FAERS Safety Report 7337482-1 (Version None)
Quarter: 2011Q1

REPORT INFORMATION
  Report Type: 
  Country: None (occurrence: None)
  Receive Date: 20110308
  Receipt Date: 20110216
  Transmission Date: 20110831
  Serious: Yes (Hospitalization, Other)
  Sender: FDA-Public Use
  Company Number: US-BAYER-2011-019858

PATIENT
  Sex: Female
  Weight: 84 kg

DRUGS (7)
  1. YASMIN [Suspect]
     Indication: PREMENSTRUAL SYNDROME
  2. CIPROFLOXACIN [Concomitant]
     Indication: URINARY TRACT INFECTION
  3. YASMIN [Suspect]
     Indication: ACNE
  4. IRON [Concomitant]
     Indication: IRON DEFICIENCY
  5. UNITHROID [Concomitant]
     Indication: HYPOTHYROIDISM
     Dosage: UNK
     Dates: start: 20030401
  6. YASMIN [Suspect]
     Indication: CONTRACEPTION
     Dosage: UNK
     Dates: start: 20030501, end: 20050101
  7. PREVACID [Concomitant]
     Indication: GASTROOESOPHAGEAL REFLUX DISEASE

REACTIONS (11)
  - PANIC ATTACK [None]
  - DYSPNOEA [None]
  - PYREXIA [None]
  - CHILLS [None]
  - DIZZINESS [None]
  - ANXIETY [None]
  - PAIN IN EXTREMITY [None]
  - COUGH [None]
  - PULMONARY EMBOLISM [None]
  - FLUSHING [None]
  - NASOPHARYNGITIS [None]
